FAERS Safety Report 6382123-3 (Version None)
Quarter: 2009Q3

REPORT INFORMATION
  Report Type: 
  Country: None (occurrence: None)
  Receive Date: 20090930
  Receipt Date: 20090925
  Transmission Date: 20100115
  Serious: Yes (Death, Hospitalization)
  Sender: FDA-Public Use
  Company Number: PHHY2009MX38639

PATIENT
  Age: 76 Year
  Sex: Male

DRUGS (2)
  1. STALEVO 100 [Suspect]
     Indication: PARKINSON'S DISEASE
     Dosage: 2 TABLETS PER DAY
     Route: 048
  2. STALEVO 100 [Suspect]
     Dosage: 5 TABLETS/DAY
     Route: 048
     Dates: start: 20070901

REACTIONS (5)
  - HALLUCINATION [None]
  - JOINT STIFFNESS [None]
  - MUSCULOSKELETAL STIFFNESS [None]
  - PNEUMONIA [None]
  - URINARY TRACT INFECTION [None]
